FAERS Safety Report 4737223-8 (Version None)
Quarter: 2005Q3

REPORT INFORMATION
  Report Type: 
  Country: None (occurrence: None)
  Receive Date: 20050808
  Receipt Date: 20050726
  Transmission Date: 20060218
  Serious: Yes (Other)
  Sender: FDA-Public Use
  Company Number: PT-MERCK-0508PRT00001

PATIENT
  Age: 60 Year
  Sex: Female

DRUGS (11)
  1. VIOXX [Suspect]
     Indication: OSTEOARTHRITIS
     Route: 048
     Dates: start: 20031101, end: 20040701
  2. CELECOXIB [Suspect]
     Indication: OSTEOARTHRITIS
     Route: 048
     Dates: start: 20031101, end: 20040701
  3. DICLOFENAC SODIUM [Concomitant]
     Route: 048
  4. DIAZEPAM [Concomitant]
     Route: 048
  5. DIAZEPAM [Concomitant]
     Route: 048
     Dates: start: 20041101
  6. PYRIDOXINE HYDROCHLORIDE AND VITAMIN A AND VITAMIN E [Concomitant]
     Route: 048
  7. FLUPIRTINE MALEATE [Suspect]
     Route: 065
  8. NANDROLONE DECANOATE [Concomitant]
     Route: 065
  9. THIOCOLCHICOSIDE [Concomitant]
     Route: 065
  10. NIMESULIDE [Concomitant]
     Route: 065
     Dates: start: 20041101
  11. TRAMADOL HYDROCHLORIDE [Concomitant]
     Route: 065
     Dates: start: 20041101

REACTIONS (5)
  - BLOOD PRESSURE DECREASED [None]
  - BLOOD PRESSURE INCREASED [None]
  - CHEST PAIN [None]
  - PALPITATIONS [None]
  - TACHYCARDIA [None]
